FAERS Safety Report 9010453 (Version 2)
Quarter: 2013Q1

REPORT INFORMATION
  Report Type: Spontaneous
  Country: FR (occurrence: FR)
  Receive Date: 20130109
  Receipt Date: 20130118
  Transmission Date: 20140127
  Serious: Yes (Life-Threatening, Hospitalization)
  Sender: FDA-Public Use
  Company Number: FR-ROCHE-1177761

PATIENT
  Age: 27 Year
  Sex: Female

DRUGS (5)
  1. VALIUM [Suspect]
     Indication: PRODUCT USED FOR UNKNOWN INDICATION
     Dosage: DROPS
     Route: 048
     Dates: start: 20121130
  2. TERCIAN [Interacting]
     Indication: PRODUCT USED FOR UNKNOWN INDICATION
     Dosage: DIVISIBLE COATED TABLET
     Route: 048
     Dates: start: 20121130
  3. OLANZAPINE [Interacting]
     Indication: PRODUCT USED FOR UNKNOWN INDICATION
     Dosage: COATED TABLET
     Route: 048
     Dates: start: 20121130
  4. LOXAPAC [Interacting]
     Indication: PRODUCT USED FOR UNKNOWN INDICATION
     Dosage: COATED TABLET
     Route: 048
     Dates: start: 20121130
  5. SOLUPRED (FRANCE) [Concomitant]

REACTIONS (2)
  - Coma [Recovered/Resolved]
  - Drug interaction [Unknown]
